FAERS Safety Report 6844527-1 (Version None)
Quarter: 2010Q2

REPORT INFORMATION
  Report Type: 
  Country: None (occurrence: None)
  Receive Date: 20100629
  Receipt Date: 20100419
  Transmission Date: 20101027
  Serious: No
  Sender: FDA-Public Use
  Company Number: US-WYE-H14797310

PATIENT
  Age: 64 Year
  Sex: Male
  Weight: 90.35 kg

DRUGS (12)
  1. PRISTIQ [Suspect]
     Indication: DEPRESSION
     Dosage: 100 MG 1X PER 1 DAY, ORAL 50 MG 1X PER 1 DAY, ORAL
     Route: 048
     Dates: start: 20100319, end: 20100415
  2. PRISTIQ [Suspect]
     Indication: DEPRESSION
     Dosage: 100 MG 1X PER 1 DAY, ORAL 50 MG 1X PER 1 DAY, ORAL
     Route: 048
     Dates: start: 20100416
  3. MIRAPEX [Concomitant]
  4. ALPRAZOLAM [Concomitant]
  5. MIRTAZAPINE [Concomitant]
  6. POTASSIUM CHLORIDE [Concomitant]
  7. METFORMIN HCL [Concomitant]
  8. HYDROCHLOROTHIAZIDE [Concomitant]
  9. LISINOPRIL [Concomitant]
  10. METOPROLOL SUCCINATE [Concomitant]
  11. SIMVASTATIN [Concomitant]
  12. ASPIRIN [Concomitant]

REACTIONS (2)
  - DECREASED APPETITE [None]
  - DRUG INEFFECTIVE [None]
